FAERS Safety Report 13829075 (Version 1)
Quarter: 2017Q3

REPORT INFORMATION
  Report Type: Spontaneous
  Country: US (occurrence: US)
  Receive Date: 20170802
  Receipt Date: 20170802
  Transmission Date: 20171127
  Serious: Yes (Hospitalization)
  Sender: FDA-Public Use
  Company Number: None

PATIENT
  Age: 81 Year
  Sex: Male

DRUGS (1)
  1. RIVAROXABAN [Suspect]
     Active Substance: RIVAROXABAN
     Indication: ATRIAL FIBRILLATION
     Route: 048
     Dates: start: 20161201

REACTIONS (4)
  - Orthostatic intolerance [None]
  - Anaemia [None]
  - Skin cancer [None]
  - Post procedural haemorrhage [None]

NARRATIVE: CASE EVENT DATE: 20170622
